FAERS Safety Report 4435148-9 (Version None)
Quarter: 2004Q3

REPORT INFORMATION
  Report Type: 
  Country: None (occurrence: None)
  Receive Date: 20040827
  Receipt Date: 20030407
  Transmission Date: 20050211
  Serious: Yes (Hospitalization, Disabling, Other)
  Sender: FDA-Public Use
  Company Number: US-MERCK-0304USA00756

PATIENT
  Age: 58 Year
  Sex: Female
  Weight: 86 kg

DRUGS (9)
  1. ASPIRIN [Concomitant]
     Indication: PROPHYLAXIS
     Route: 065
  2. ASPIRIN [Concomitant]
     Route: 065
  3. TAGAMET [Concomitant]
     Route: 065
  4. PREMARIN [Concomitant]
     Route: 065
  5. ESTRATAB [Concomitant]
     Indication: HORMONE REPLACEMENT THERAPY
     Route: 065
  6. L-THYROXIN [Concomitant]
     Indication: THYROID DISORDER
     Route: 065
  7. RANITIDINE [Concomitant]
     Indication: GASTRIC DISORDER
     Route: 065
  8. VIOXX [Suspect]
     Indication: ARTHRITIS
     Route: 048
     Dates: start: 20000731, end: 20010904
  9. HYTRIN [Concomitant]
     Indication: HYPERTENSION
     Route: 065
     Dates: end: 20000101

REACTIONS (33)
  - AORTIC VALVE INCOMPETENCE [None]
  - AORTIC VALVE SCLEROSIS [None]
  - BRONCHITIS CHRONIC [None]
  - CHEST PAIN [None]
  - CHOLELITHIASIS [None]
  - CHRONIC FATIGUE SYNDROME [None]
  - DEPRESSION [None]
  - DIZZINESS [None]
  - DUODENITIS [None]
  - ENDOCARDITIS [None]
  - GALLBLADDER DISORDER [None]
  - GASTRITIS [None]
  - GASTROOESOPHAGEAL REFLUX DISEASE [None]
  - GENERALISED ANXIETY DISORDER [None]
  - HAEMATURIA [None]
  - HERPES ZOSTER [None]
  - HYPERTENSION [None]
  - HYPERTENSIVE CRISIS [None]
  - HYPOACUSIS [None]
  - HYPOKALAEMIA [None]
  - IRRITABLE BOWEL SYNDROME [None]
  - LACUNAR INFARCTION [None]
  - LARYNGITIS [None]
  - MIGRAINE WITH AURA [None]
  - MITRAL VALVE CALCIFICATION [None]
  - MITRAL VALVE INCOMPETENCE [None]
  - NON-CARDIAC CHEST PAIN [None]
  - PANIC DISORDER [None]
  - SLEEP APNOEA SYNDROME [None]
  - TENSION HEADACHE [None]
  - THALAMUS HAEMORRHAGE [None]
  - TRANSIENT ISCHAEMIC ATTACK [None]
  - UPPER RESPIRATORY TRACT INFECTION [None]
